FAERS Safety Report 5127301-6 (Version None)
Quarter: 2006Q4

REPORT INFORMATION
  Report Type: 
  Country: None (occurrence: None)
  Receive Date: 20061013
  Receipt Date: 20060929
  Transmission Date: 20070319
  Serious: Yes (Other)
  Sender: FDA-Public Use
  Company Number: JP-ABBOTT-06P-087-0345598-00

PATIENT
  Age: 73 Year
  Sex: Female

DRUGS (4)
  1. CLARITHROMYCIN [Suspect]
     Indication: HELICOBACTER INFECTION
     Route: 048
     Dates: start: 20060701, end: 20060707
  2. LANSOPRAZOLE [Suspect]
     Indication: HELICOBACTER INFECTION
     Route: 048
     Dates: start: 20060701, end: 20060707
  3. AMOXICILLIN TRIHYDRATE [Suspect]
     Indication: HELICOBACTER INFECTION
     Route: 048
     Dates: start: 20060701, end: 20060707
  4. BETAMETHASONE [Suspect]
     Indication: TOXIC SKIN ERUPTION
     Route: 048
     Dates: start: 20060701

REACTIONS (3)
  - BLOOD PRESSURE INCREASED [None]
  - RASH [None]
  - TOXIC SKIN ERUPTION [None]
